FAERS Safety Report 4382141-0 (Version None)
Quarter: 2004Q2

REPORT INFORMATION
  Report Type: 
  Country: None (occurrence: None)
  Receive Date: 20040617
  Receipt Date: 20030516
  Transmission Date: 20050107
  Serious: Yes (Hospitalization)
  Sender: FDA-Public Use
  Company Number: TAP2003Q01213

PATIENT
  Age: 16 Year
  Sex: Male
  Weight: 61.7 kg

DRUGS (2)
  1. LUPRON DEPOT [Suspect]
     Indication: PRECOCIOUS PUBERTY
     Dosage: 15 MG, 1 IN 28 D, INTRAMUSCULAR
     Route: 030
     Dates: start: 20010411, end: 20020402
  2. GENOTROPIN [Suspect]
     Indication: GROWTH HORMONE DEFICIENCY
     Dosage: 6 IN 1 WK, SUBCUTANEOUS
     Route: 058
     Dates: start: 20010501, end: 20020801

REACTIONS (6)
  - ASTHENIA [None]
  - CEREBROVASCULAR ACCIDENT [None]
  - DROOLING [None]
  - DYSARTHRIA [None]
  - FACIAL PARESIS [None]
  - HYPOAESTHESIA [None]
